FAERS Safety Report 5786205-6 (Version None)
Quarter: 2008Q2

REPORT INFORMATION
  Report Type: 
  Country: None (occurrence: None)
  Receive Date: 20080624
  Receipt Date: 20070810
  Transmission Date: 20081010
  Serious: No
  Sender: FDA-Public Use
  Company Number: US-ASTRAZENECA-2007UW19458

PATIENT
  Age: 46 Year
  Sex: Male
  Weight: 158.8 kg

DRUGS (12)
  1. PULMICORT RESPULES [Suspect]
     Indication: ASTHMA
     Dosage: 2 OF THE O.5MG RESPULES BID
     Route: 055
     Dates: start: 20070809
  2. INHALER ALBUTEROL [Concomitant]
     Route: 055
  3. DUONEB [Concomitant]
     Route: 055
  4. ANXIETY MEDICATION [Concomitant]
  5. ALLEGRA [Concomitant]
  6. SINGULAIR [Concomitant]
     Dates: start: 20070810
  7. NASONEX [Concomitant]
  8. BLOOD PRESSURE MEDS [Concomitant]
  9. INSULIN [Concomitant]
  10. CHOLESTEROL MEDS [Concomitant]
  11. SOMETHING FOR MY STOMACH [Concomitant]
  12. WATER PILL [Concomitant]

REACTIONS (5)
  - ANXIETY [None]
  - DYSPNOEA [None]
  - FEELING COLD [None]
  - PALLOR [None]
  - TREATMENT NONCOMPLIANCE [None]
